FAERS Safety Report 10067470 (Version 1)
Quarter: 2014Q2

REPORT INFORMATION
  Report Type: Spontaneous
  Country: FR (occurrence: None)
  Receive Date: 20140407
  Receipt Date: 20140407
  Transmission Date: 20141212
  Serious: Yes (Hospitalization)
  Sender: FDA-Public Use
  Company Number: SYM-2014-19155

PATIENT
  Age: 82 Year
  Sex: Female

DRUGS (22)
  1. FLAGYL (METRONDIAZOLE) (500 MILLIGRAM, TABLET) (METRONDIAZOLE) [Suspect]
     Indication: SEPTIC SHOCK
     Route: 048
     Dates: start: 20131230, end: 20140108
  2. FLAGYL (METRONDIAZOLE) (500 MILLIGRAM, TABLET) (METRONDIAZOLE) [Suspect]
     Indication: CLOSTRIDIUM DIFFICILE INFECTION
     Route: 048
     Dates: start: 20131230, end: 20140108
  3. FLAGYL (METRONDIAZOLE) (500 MILLIGRAM, TABLET) (METRONDIAZOLE) [Suspect]
     Indication: ESCHERICHIA INFECTION
     Route: 048
     Dates: start: 20131230, end: 20140108
  4. FLAGYL (METRONDIAZOLE) (500 MILLIGRAM, TABLET) (METRONDIAZOLE) [Suspect]
     Indication: PYELONEPHRITIS
     Route: 048
     Dates: start: 20131230, end: 20140108
  5. VANCOMYCIN HYDROCHLORIDE(VANCOMYCIN HYDROCHLORIDE) (VANCOMYCIN HYDRCHLORIDE) [Concomitant]
  6. DEROXAT (PAROXETINE HYDROCHLORIDE) (PAROXETINE HYDROCHLORIDE) [Concomitant]
  7. TEMESTA (LORAZEPAM) (LORAZEPAM) [Concomitant]
  8. CARDENSIEL (BISOPROLOL FUMARATE) (BISOPROLOL FUMARATE) [Concomitant]
  9. RAMIPRIL (RAMIPRIL) (RAMIPRIL) [Concomitant]
  10. LASILIX (FUROSEMIDE) (FUROSEMIDE) [Concomitant]
  11. CRESTOR (ROSUVASTATIN CALCIUM) (ROSUVASTATIN CALCIUM) [Concomitant]
  12. COUMADINE (WARFARIN SODIUM) (WARFARIN SODIUM) [Concomitant]
  13. DIFFU K (POTASSIUM CHLORIDE) (POTASSIUM CHLORIDE) [Concomitant]
  14. SOTALEX (SOTALOL HYDROCHLORIDE) (SOTALOL HYDROCHLORIDE) [Concomitant]
  15. PREVISCAN (FLUINDIONE)(FLUINDIONE) [Concomitant]
  16. MEDIATENSYL (URAPIDIL) (URAPIDIL) [Concomitant]
  17. PARACETAMOL (PARACETAMOL) (PARACETAMOL) [Concomitant]
  18. ROCEPHINE (CEFTRIAXONE SODIUM) (CEFTRIAXONE SODIUM) [Concomitant]
  19. CIFLOX (CIPROFLOXACIN) (CIPROFLOXACIN) [Concomitant]
  20. OFLOCET (OFLOXACIN) (OFLOXACIN) [Concomitant]
  21. TVANIC (LEVOFLOXACIN) (LEVOFLOXACIN) [Concomitant]
  22. AMIKACIN (AMIKACIN) (AMIKACIN) [Concomitant]

REACTIONS (3)
  - Malaise [None]
  - Loss of consciousness [None]
  - Generalised tonic-clonic seizure [None]
